FAERS Safety Report 8915686 (Version 1)
Quarter: 2012Q4

REPORT INFORMATION
  Report Type: 
  Country: JP (occurrence: JP)
  Receive Date: 20121119
  Receipt Date: 20121119
  Transmission Date: 20130627
  Serious: Yes (Hospitalization, Other)
  Sender: FDA-Public Use
  Company Number: JP-TEVA-370290USA

PATIENT
  Age: 64 Year
  Sex: Female

DRUGS (6)
  1. TREANDA [Suspect]
     Indication: B-CELL LYMPHOMA
     Dosage: 90 mg/m2 UID/QD
     Route: 042
  2. RITUXIMAB [Concomitant]
     Dates: start: 20110518
  3. GRANISETRON [Concomitant]
  4. ACICLOVIR [Concomitant]
     Dates: start: 20110519
  5. SULFAMETHOXAZOLE W/TRIMETHOPRIM [Concomitant]
     Dates: start: 20110519
  6. PALONOSETRON [Concomitant]
     Dates: start: 20110802, end: 20110802

REACTIONS (16)
  - Colon cancer [Recovered/Resolved]
  - Vasculitis [Recovered/Resolved]
  - Red blood cell count decreased [Recovered/Resolved]
  - Haemoglobin decreased [Recovered/Resolved]
  - White blood cell count decreased [Recovered/Resolved]
  - Neutrophil count decreased [Unknown]
  - Lymphocyte count decreased [Unknown]
  - Platelet count decreased [Recovered/Resolved]
  - Blood uric acid increased [Unknown]
  - Blood sodium decreased [Recovered/Resolved]
  - Nausea [Recovered/Resolved]
  - Decreased appetite [Recovered/Resolved]
  - Constipation [Recovered/Resolved]
  - Pyrexia [Recovered/Resolved]
  - Phlebitis [Recovered/Resolved]
  - Stomatitis [Unknown]
